FAERS Safety Report 21832946 (Version 2)
Quarter: 2023Q1

REPORT INFORMATION
  Report Type: Spontaneous
  Country: US (occurrence: US)
  Receive Date: 20230106
  Receipt Date: 20230216
  Transmission Date: 20230418
  Serious: Yes (Hospitalization, Other)
  Sender: FDA-Public Use
  Company Number: US-ALLERGAN-2239568US

PATIENT
  Sex: Female

DRUGS (1)
  1. QULIPTA [Suspect]
     Active Substance: ATOGEPANT
     Indication: Product used for unknown indication
     Dosage: UNK

REACTIONS (8)
  - Cerebrovascular accident [Unknown]
  - Hospitalisation [Unknown]
  - Dizziness [Unknown]
  - Eye pain [Unknown]
  - Disturbance in attention [Unknown]
  - Confusional state [Unknown]
  - Therapy interrupted [Unknown]
  - Nausea [Unknown]
